FAERS Safety Report 23309376 (Version 2)
Quarter: 2024Q2

REPORT INFORMATION
  Report Type: Spontaneous
  Country: JP (occurrence: JP)
  Receive Date: 20231218
  Receipt Date: 20240429
  Transmission Date: 20240716
  Serious: Yes (Other)
  Sender: FDA-Public Use
  Company Number: JP-MSD-M2023-54224

PATIENT
  Age: 73 Year
  Sex: Male

DRUGS (5)
  1. KEYTRUDA [Suspect]
     Active Substance: PEMBROLIZUMAB
     Indication: Oesophageal squamous cell carcinoma stage IV
     Dosage: 200 MILLIGRAM, Q3W
     Route: 041
     Dates: start: 20230908
  2. CISPLATIN [Suspect]
     Active Substance: CISPLATIN
     Indication: Oesophageal squamous cell carcinoma stage IV
     Dosage: 80 MILLIGRAM/SQ. METER, Q3W
     Route: 041
     Dates: start: 20230908, end: 2023
  3. CISPLATIN [Suspect]
     Active Substance: CISPLATIN
     Dosage: 80 MILLIGRAM/SQ. METER, EVERY 4 WEEKS
     Route: 041
     Dates: start: 2023, end: 2023
  4. FLUOROURACIL [Suspect]
     Active Substance: FLUOROURACIL
     Indication: Oesophageal squamous cell carcinoma stage IV
     Dosage: 800 MILLIGRAM/SQ. METER, Q3W, (1 TO 5 DAYS)
     Route: 041
     Dates: start: 20230908, end: 2023
  5. FLUOROURACIL [Suspect]
     Active Substance: FLUOROURACIL
     Dosage: 800 MILLIGRAM/SQ. METER, EVERY 4 WEEKS
     Route: 041
     Dates: start: 2023, end: 2023

REACTIONS (1)
  - Neutrophil count decreased [Recovered/Resolved]

NARRATIVE: CASE EVENT DATE: 20230929
